FAERS Safety Report 4349327-2 (Version None)
Quarter: 2004Q2

REPORT INFORMATION
  Report Type: 
  Country: None (occurrence: None)
  Receive Date: 20040426
  Receipt Date: 20040414
  Transmission Date: 20050107
  Serious: No
  Sender: FDA-Public Use
  Company Number: 04P-056-0257551-00

PATIENT
  Sex: Male
  Weight: 68 kg

DRUGS (3)
  1. NORVIR [Suspect]
     Indication: ANTI-INFECTIVE THERAPY
     Dosage: 100 MG, 2 IN 1 D, PER ORAL
     Route: 048
  2. INDINAVIR [Suspect]
     Indication: ANTI-INFECTIVE THERAPY
     Dosage: 400 MG, 2 IN 1 D, PER ORAL
     Route: 048
  3. NRTI [Concomitant]

REACTIONS (1)
  - HAEMOLYSIS [None]
